FAERS Safety Report 9495381 (Version 1)
Quarter: 2013Q3

REPORT INFORMATION
  Report Type: Spontaneous
  Country: NL (occurrence: NL)
  Receive Date: 20130903
  Receipt Date: 20130903
  Transmission Date: 20140515
  Serious: Yes (Other)
  Sender: FDA-Public Use
  Company Number: NL-GLAXOSMITHKLINE-B0919462A

PATIENT
  Age: 59 Year
  Sex: Male
  Weight: 60 kg

DRUGS (5)
  1. SERETIDE [Suspect]
     Indication: ASTHMA
     Route: 055
     Dates: start: 20130703, end: 20130801
  2. SALBUTAMOL [Concomitant]
     Indication: PRODUCT USED FOR UNKNOWN INDICATION
     Route: 055
  3. METHOTREXATE [Concomitant]
     Dosage: 15MG WEEKLY
     Route: 058
  4. PLAQUENIL [Concomitant]
     Dosage: 200MG PER DAY
     Route: 048
  5. FOLIC ACID [Concomitant]
     Dosage: 5MG PER DAY
     Route: 048

REACTIONS (1)
  - Conjunctival haemorrhage [Recovering/Resolving]
